FAERS Safety Report 22907760 (Version 2)
Quarter: 2023Q4

REPORT INFORMATION
  Report Type: Spontaneous
  Country: US (occurrence: US)
  Receive Date: 20230905
  Receipt Date: 20231204
  Transmission Date: 20240109
  Serious: Yes (Other)
  Sender: FDA-Public Use
  Company Number: US-PFIZER INC-2017074315

PATIENT
  Age: 53 Year
  Sex: Female

DRUGS (8)
  1. PREMARIN [Suspect]
     Active Substance: ESTROGENS, CONJUGATED
     Indication: Dysplasia
     Dosage: 1 DF, DAILY
     Route: 048
     Dates: start: 20091015
  2. PREMARIN [Suspect]
     Active Substance: ESTROGENS, CONJUGATED
     Indication: Neoplasm prophylaxis
  3. CALCIUM\VITAMIN D [Concomitant]
     Active Substance: CALCIUM\VITAMIN D
     Dosage: 1 DF, DAILY (CALCIUM-600MG, COLECALCIFEROL-200MG)
     Route: 048
     Dates: start: 20070601
  4. ASPIRIN [Concomitant]
     Active Substance: ASPIRIN
     Dosage: 1 DF, ALTERNATE DAY (QOD)
     Route: 048
     Dates: start: 20070601
  5. TENORMIN [Concomitant]
     Active Substance: ATENOLOL
     Dosage: 1 DF DAILY
     Route: 048
     Dates: start: 20130110
  6. ACYCLOVIR [Concomitant]
     Active Substance: ACYCLOVIR
     Dosage: 1 DF, DAILY
     Dates: start: 20150930
  7. ATIVAN [Concomitant]
     Active Substance: LORAZEPAM
     Dosage: 1 DF, 2X/DAY
     Dates: start: 20160310
  8. AMOXICILLIN [Concomitant]
     Active Substance: AMOXICILLIN
     Dosage: 500 MG, 3X/DAY (10 DAYS)
     Route: 048
     Dates: start: 20170111

REACTIONS (3)
  - Hysterectomy [Unknown]
  - Off label use [Unknown]
  - Drug effective for unapproved indication [Unknown]

NARRATIVE: CASE EVENT DATE: 20091015
